FAERS Safety Report 24233071 (Version 1)
Quarter: 2024Q3

REPORT INFORMATION
  Report Type: Spontaneous
  Country: US (occurrence: US)
  Receive Date: 20240821
  Receipt Date: 20240821
  Transmission Date: 20241017
  Serious: No
  Sender: JOHNSON AND JOHNSON
  Company Number: US-JNJFOC-20240827135

PATIENT
  Age: 24 Year
  Sex: Male
  Weight: 59.02 kg

DRUGS (2)
  1. STELARA [Suspect]
     Active Substance: USTEKINUMAB
     Indication: Crohn^s disease
     Route: 058
  2. STELARA [Suspect]
     Active Substance: USTEKINUMAB

REACTIONS (4)
  - Injection site nodule [Not Recovered/Not Resolved]
  - Wrong technique in product usage process [Unknown]
  - Injection site haemorrhage [Recovering/Resolving]
  - Drug delivery system malfunction [Unknown]

NARRATIVE: CASE EVENT DATE: 20240810
